FAERS Safety Report 23402353 (Version 1)
Quarter: 2024Q1

REPORT INFORMATION
  Report Type: Spontaneous
  Country: EG (occurrence: EG)
  Receive Date: 20240115
  Receipt Date: 20240115
  Transmission Date: 20240410
  Serious: Yes (Hospitalization, Other)
  Sender: FDA-Public Use
  Company Number: EG-009507513-2401EGY006086

PATIENT
  Sex: Male

DRUGS (4)
  1. KEYTRUDA [Suspect]
     Active Substance: PEMBROLIZUMAB
     Indication: Colorectal cancer
     Dosage: 200 MILLIGRAM, Q3W, IN GENERAL
     Route: 042
     Dates: start: 20220522
  2. KEYTRUDA [Suspect]
     Active Substance: PEMBROLIZUMAB
     Dosage: 200 MILLIGRAM, Q3W, UNKNOWN CYCLE IN GENERAL
     Route: 042
  3. AMARYL [Concomitant]
     Active Substance: GLIMEPIRIDE
     Dosage: 2 MILLIGRAM
  4. VILDAGLIPTIN [Concomitant]
     Active Substance: VILDAGLIPTIN
     Dosage: 50 MILLIGRAM

REACTIONS (2)
  - Cholecystectomy [Recovered/Resolved]
  - Inappropriate schedule of product administration [Unknown]
